FAERS Safety Report 25969049 (Version 1)
Quarter: 2025Q4

REPORT INFORMATION
  Report Type: Spontaneous
  Country: GB (occurrence: GB)
  Receive Date: 20251028
  Receipt Date: 20251028
  Transmission Date: 20260117
  Serious: Yes (Disabling, Other)
  Sender: AUROBINDO
  Company Number: GB-MHRA-37364554

PATIENT
  Sex: Female

DRUGS (1)
  1. APIXABAN [Suspect]
     Active Substance: APIXABAN
     Indication: Product used for unknown indication
     Dosage: UNK
     Route: 065

REACTIONS (5)
  - Joint stiffness [Unknown]
  - Arthralgia [Unknown]
  - Balance disorder [Unknown]
  - Myalgia [Unknown]
  - Pain [Not Recovered/Not Resolved]
